FAERS Safety Report 5467890-5 (Version None)
Quarter: 2007Q3

REPORT INFORMATION
  Report Type: 
  Country: None (occurrence: None)
  Receive Date: 20070926
  Receipt Date: 20070917
  Transmission Date: 20080115
  Serious: Yes (Hospitalization)
  Sender: FDA-Public Use
  Company Number: HQWYE191618SEP07

PATIENT
  Age: 31 Year
  Sex: Male
  Weight: 68 kg

DRUGS (5)
  1. SIROLIMUS [Suspect]
     Indication: IMMUNOSUPPRESSION
     Route: 065
     Dates: start: 20050101, end: 20050101
  2. TACROLIMUS [Concomitant]
     Indication: IMMUNOSUPPRESSION
     Route: 065
     Dates: start: 20050101, end: 20050101
  3. TACROLIMUS [Concomitant]
     Route: 065
     Dates: start: 20050101
  4. PREDNISOLONE [Concomitant]
     Indication: IMMUNOSUPPRESSION
     Route: 065
     Dates: start: 20050101, end: 20050101
  5. PREDNISOLONE [Concomitant]
     Route: 065
     Dates: start: 20050101

REACTIONS (3)
  - ESCHERICHIA URINARY TRACT INFECTION [None]
  - HYPOKALAEMIA [None]
  - RENAL TUBULAR DISORDER [None]
